FAERS Safety Report 7237480-2 (Version None)
Quarter: 2011Q1

REPORT INFORMATION
  Report Type: 
  Country: None (occurrence: None)
  Receive Date: 20110121
  Receipt Date: 20110118
  Transmission Date: 20110831
  Serious: Yes (Hospitalization)
  Sender: FDA-Public Use
  Company Number: FR-SANOFI-AVENTIS-2011SA003768

PATIENT
  Age: 83 Year
  Sex: Male

DRUGS (1)
  1. ARAVA [Suspect]
     Route: 048
     Dates: end: 20100101

REACTIONS (4)
  - INFECTION [None]
  - NEUTROPENIA [None]
  - AGRANULOCYTOSIS [None]
  - MYOCARDIAL INFARCTION [None]
